FAERS Safety Report 13954146 (Version 2)
Quarter: 2018Q1

REPORT INFORMATION
  Report Type: Report from Study
  Country: US (occurrence: US)
  Receive Date: 20170911
  Receipt Date: 20180314
  Transmission Date: 20180508
  Serious: No
  Sender: FDA-Public Use
  Company Number: PHEH2017US029097

PATIENT
  Sex: Female

DRUGS (1)
  1. ILARIS [Suspect]
     Active Substance: CANAKINUMAB
     Indication: CRYOPYRIN ASSOCIATED PERIODIC SYNDROME
     Dosage: 150 MG, EVERY 8 WEEKS
     Route: 058

REACTIONS (2)
  - Sinusitis [Unknown]
  - Inappropriate schedule of drug administration [Unknown]
